FAERS Safety Report 14561609 (Version 1)
Quarter: 2018Q1

REPORT INFORMATION
  Report Type: Report from Study
  Country: US (occurrence: US)
  Receive Date: 20180222
  Receipt Date: 20180222
  Transmission Date: 20180509
  Serious: Yes (Hospitalization, Other)
  Sender: FDA-Public Use
  Company Number: US-GILEAD-2018-0321634

PATIENT
  Age: 86 Year
  Sex: Female

DRUGS (2)
  1. AMBRISENTAN [Suspect]
     Active Substance: AMBRISENTAN
     Indication: PULMONARY ARTERIAL HYPERTENSION
     Dosage: 10 MG, QD
     Route: 048
     Dates: start: 20130210
  2. OXYGEN. [Concomitant]
     Active Substance: OXYGEN

REACTIONS (4)
  - Dyspnoea [Recovering/Resolving]
  - Interstitial lung disease [Recovering/Resolving]
  - Fluid overload [Recovering/Resolving]
  - Infection [Recovering/Resolving]
